FAERS Safety Report 16231650 (Version 3)
Quarter: 2019Q3

REPORT INFORMATION
  Report Type: Report from Study
  Country: BR (occurrence: BR)
  Receive Date: 20190424
  Receipt Date: 20190909
  Transmission Date: 20191004
  Serious: Yes (Death, Hospitalization)
  Sender: FDA-Public Use
  Company Number: BR-VIIV HEALTHCARE LIMITED-BR2018GSK158959

PATIENT
  Age: 61 Year
  Sex: Male
  Weight: 75.5 kg

DRUGS (1)
  1. MARAVIROC [Suspect]
     Active Substance: MARAVIROC
     Indication: HIV INFECTION
     Dosage: UNK
     Dates: start: 20080716

REACTIONS (6)
  - Abdominal mass [Fatal]
  - Jaundice [Not Recovered/Not Resolved]
  - General physical health deterioration [Fatal]
  - Abdominal pain upper [Not Recovered/Not Resolved]
  - Nausea [Unknown]
  - Gastritis [Unknown]

NARRATIVE: CASE EVENT DATE: 20180710
